FAERS Safety Report 8812032 (Version 1)
Quarter: 2012Q4

REPORT INFORMATION
  Report Type: Spontaneous
  Country: US (occurrence: None)
  Receive Date: 20120926
  Receipt Date: 20120926
  Transmission Date: 20130627
  Serious: No
  Sender: FDA-Public Use
  Company Number: None

PATIENT
  Age: 47 Year
  Sex: Female

DRUGS (1)
  1. ATRIPLA [Suspect]
     Indication: HIV INFECTION NOS
     Dosage: 1 tablet daily po
     Route: 048
     Dates: start: 20120516, end: 201209

REACTIONS (2)
  - Pruritus [None]
  - Burning sensation [None]
